FAERS Safety Report 13174442 (Version 2)
Quarter: 2017Q1

REPORT INFORMATION
  Report Type: Spontaneous
  Country: PE (occurrence: PE)
  Receive Date: 20170201
  Receipt Date: 20170303
  Transmission Date: 20170428
  Serious: Yes (Other)
  Sender: FDA-Public Use
  Company Number: PE-PFIZER INC-2017030841

PATIENT
  Age: 76 Year
  Sex: Female

DRUGS (2)
  1. XALATAN [Suspect]
     Active Substance: LATANOPROST
     Indication: GLAUCOMA
     Dosage: 1 DROP ON EACH EYE DAILY
     Route: 047
  2. IMOT OFTENO [Concomitant]
     Dosage: 2 GTT( 1 DROP EACH EYE), 2X/DAY
     Route: 047

REACTIONS (2)
  - Ankle fracture [Recovering/Resolving]
  - Fall [Recovering/Resolving]

NARRATIVE: CASE EVENT DATE: 201701
